FAERS Safety Report 15822575 (Version 1)
Quarter: 2019Q1

REPORT INFORMATION
  Report Type: Spontaneous
  Country: CN (occurrence: CN)
  Receive Date: 20190114
  Receipt Date: 20190114
  Transmission Date: 20190417
  Serious: Yes (Other)
  Sender: FDA-Public Use
  Company Number: CN-PFIZER INC-2019009132

PATIENT
  Age: 35 Year
  Sex: Female

DRUGS (7)
  1. ETIMICIN SULFATE [Suspect]
     Active Substance: ETIMICIN SULFATE
     Indication: ANTI-INFECTIVE THERAPY
     Dosage: 0.3 G, 1X/DAY
     Route: 041
     Dates: start: 20170213, end: 20170225
  2. ALPROSTADIL. [Concomitant]
     Active Substance: ALPROSTADIL
     Dosage: 10 UG, 1X/DAY
     Route: 042
  3. ASPIRIN [ACETYLSALICYLIC ACID] [Concomitant]
     Active Substance: ASPIRIN
     Dosage: 100 MG, 1X/DAY
     Route: 048
  4. GLUCOSE [Concomitant]
     Active Substance: DEXTROSE
     Indication: VEHICLE SOLUTION USE
     Dosage: UNK (OF 0.5 G OF AZITHROMYCIN IN 250 ML OF 5% GLUCOSE)
     Route: 041
  5. EDARAVONE [Concomitant]
     Active Substance: EDARAVONE
     Dosage: 30 MG, 2X/DAY
     Route: 041
  6. AZITHROMYCIN ANHYDROUS. [Suspect]
     Active Substance: AZITHROMYCIN ANHYDROUS
     Indication: PNEUMONIA
     Dosage: 0.5 G, 1X/DAY (0.5 G OF AZITHROMYCIN IN 250 ML OF 5% GLUCOSE)
     Route: 041
     Dates: start: 20170212, end: 20170212
  7. SODIUM CHLORIDE. [Concomitant]
     Active Substance: SODIUM CHLORIDE
     Indication: VEHICLE SOLUTION USE
     Dosage: UNK (0.3 G ETIMICIN SULFATE IN 250 ML OF 0.9% SODIUM CHLORIDE INJECTION)
     Route: 041

REACTIONS (1)
  - Dermatitis exfoliative [Recovered/Resolved]
